FAERS Safety Report 16956764 (Version 3)
Quarter: 2019Q4

REPORT INFORMATION
  Report Type: Spontaneous
  Country: JP (occurrence: JP)
  Receive Date: 20191024
  Receipt Date: 20191215
  Transmission Date: 20200122
  Serious: Yes (Life-Threatening, Other)
  Sender: FDA-Public Use
  Company Number: JP-009507513-1910JPN003088J

PATIENT
  Age: 75 Year
  Sex: Female
  Weight: 55 kg

DRUGS (6)
  1. CARBOPLATIN. [Suspect]
     Active Substance: CARBOPLATIN
     Indication: NON-SMALL CELL LUNG CANCER
     Dosage: 400 MILLIGRAM, Q3W
     Route: 041
     Dates: start: 20190620, end: 20190809
  2. KEYTRUDA [Suspect]
     Active Substance: PEMBROLIZUMAB
     Indication: NON-SMALL CELL LUNG CANCER
     Dosage: 200 MILLIGRAM, Q3W
     Route: 041
     Dates: start: 20190620, end: 20190809
  3. KEYTRUDA [Suspect]
     Active Substance: PEMBROLIZUMAB
     Dosage: 200 MILLIGRAM, Q3W
     Route: 041
     Dates: start: 20191018, end: 20191018
  4. CARBOPLATIN. [Suspect]
     Active Substance: CARBOPLATIN
     Dosage: 400 MILLIGRAM, Q3W
     Route: 041
     Dates: start: 20191018, end: 20191018
  5. ALIMTA [Suspect]
     Active Substance: PEMETREXED DISODIUM
     Dosage: 750 MILLIGRAM, Q3W
     Route: 041
     Dates: start: 20191018, end: 20191018
  6. ALIMTA [Suspect]
     Active Substance: PEMETREXED DISODIUM
     Indication: NON-SMALL CELL LUNG CANCER
     Dosage: 750 MILLIGRAM, Q3W
     Route: 041
     Dates: start: 20190620, end: 20190809

REACTIONS (2)
  - Blister [Recovered/Resolved]
  - Off label use [Unknown]

NARRATIVE: CASE EVENT DATE: 20190712
